FAERS Safety Report 9050274 (Version 3)
Quarter: 2013Q1

REPORT INFORMATION
  Report Type: Spontaneous
  Country: US (occurrence: US)
  Receive Date: 20130205
  Receipt Date: 20130327
  Transmission Date: 20140127
  Serious: Yes (Other)
  Sender: FDA-Public Use
  Company Number: US-PFIZER INC-2013046436

PATIENT
  Sex: Female

DRUGS (1)
  1. CELEBREX [Suspect]
     Dosage: UNK

REACTIONS (6)
  - Back disorder [Unknown]
  - Limb discomfort [Unknown]
  - Arthropathy [Unknown]
  - Migraine [Unknown]
  - Pain [Unknown]
  - Musculoskeletal pain [Unknown]
